FAERS Safety Report 9106903 (Version 1)
Quarter: 2013Q1

REPORT INFORMATION
  Report Type: Spontaneous
  Country: FR (occurrence: FR)
  Receive Date: 20130221
  Receipt Date: 20130221
  Transmission Date: 20140127
  Serious: Yes (Other)
  Sender: FDA-Public Use
  Company Number: FR-BRISTOL-MYERS SQUIBB COMPANY-17373853

PATIENT
  Sex: 0

DRUGS (1)
  1. ORENCIA FOR INJ [Suspect]
     Route: 042

REACTIONS (3)
  - Myocardial infarction [Unknown]
  - Hyperthermia [Unknown]
  - Malaise [Unknown]
